FAERS Safety Report 4918103-1 (Version None)
Quarter: 2006Q1

REPORT INFORMATION
  Report Type: 
  Country: None (occurrence: None)
  Receive Date: 20060215
  Receipt Date: 20060203
  Transmission Date: 20060701
  Serious: Yes (Hospitalization)
  Sender: FDA-Public Use
  Company Number: PAR_0499_2006

PATIENT
  Age: 53 Year
  Sex: Male

DRUGS (4)
  1. METOPROLOL [Suspect]
     Indication: ATRIAL FLUTTER
  2. ACENOCOUMEROL [Concomitant]
  3. ATORVASTATIN CALCIUM [Concomitant]
  4. QUINAPRIL [Concomitant]

REACTIONS (6)
  - DELIRIUM [None]
  - FALL [None]
  - HALLUCINATIONS, MIXED [None]
  - HEPATIC ENZYME INCREASED [None]
  - RIB FRACTURE [None]
  - SKIN LACERATION [None]
